FAERS Safety Report 5288296-8 (Version None)
Quarter: 2007Q2

REPORT INFORMATION
  Report Type: 
  Country: None (occurrence: None)
  Receive Date: 20070405
  Receipt Date: 20070326
  Transmission Date: 20071010
  Serious: Yes (Hospitalization)
  Sender: FDA-Public Use
  Company Number: ES-ROCHE-490052

PATIENT
  Age: 38 Year
  Sex: Female

DRUGS (3)
  1. PEGASYS [Suspect]
     Dosage: FORM: PRE-FILLED SYRINGE.
     Route: 058
     Dates: start: 20040712
  2. COPEGUS [Suspect]
     Route: 048
     Dates: start: 20040712
  3. TRIZIVIR [Suspect]
     Dosage: STRENGTH + FORM: 300/150/300 MG/COATED. FREQUENCY: TWO FIXED DOSES.
     Route: 048
     Dates: start: 20040712, end: 20040802

REACTIONS (2)
  - ANAEMIA [None]
  - GRANULOCYTOPENIA [None]
